FAERS Safety Report 8234110-8 (Version None)
Quarter: 2012Q1

REPORT INFORMATION
  Report Type: 
  Country: None (occurrence: None)
  Receive Date: 20120326
  Receipt Date: 20120326
  Transmission Date: 20120608
  Serious: Yes (Life-Threatening, Hospitalization, Other)
  Sender: FDA-Public Use
  Company Number: None

PATIENT
  Age: 69 Year
  Sex: Female
  Weight: 58.059 kg

DRUGS (3)
  1. TIMOLOL MALEATE [Suspect]
     Indication: GLAUCOMA
     Dosage: ONE DROP IN EACH EYE EVENING
     Dates: start: 20120201, end: 20120201
  2. PAVOPROST OPTHALMIC [Concomitant]
     Indication: GLAUCOMA
     Dosage: ONE DROP IN EACH EYE EVEING
     Dates: start: 20120301, end: 20120301
  3. TIMOLOL MALEATE [Suspect]

REACTIONS (4)
  - HEADACHE [None]
  - BLOOD PRESSURE INCREASED [None]
  - VOMITING [None]
  - BLOOD PRESSURE FLUCTUATION [None]
